FAERS Safety Report 4985984-5 (Version None)
Quarter: 2006Q2

REPORT INFORMATION
  Report Type: 
  Country: None (occurrence: None)
  Receive Date: 20060421
  Receipt Date: 20060403
  Transmission Date: 20061013
  Serious: Yes (Hospitalization)
  Sender: FDA-Public Use
  Company Number: 223699

PATIENT
  Age: 68 Year
  Sex: Male

DRUGS (2)
  1. MABTHERA              (RITUXIMAB)              CONC FOR SOLUTION FOR I [Suspect]
     Indication: MANTLE CELL LYMPHOMA
     Dates: start: 20060308
  2. LISINOPRIL [Concomitant]

REACTIONS (2)
  - DISEASE PROGRESSION [None]
  - RESPIRATORY DISTRESS [None]
